FAERS Safety Report 6839001-2 (Version None)
Quarter: 2010Q3

REPORT INFORMATION
  Report Type: 
  Country: None (occurrence: None)
  Receive Date: 20100713
  Receipt Date: 20090512
  Transmission Date: 20110219
  Serious: No
  Sender: FDA-Public Use
  Company Number: US-PFIZER INC-2007035159

PATIENT
  Age: 73 Year
  Sex: Female
  Weight: 54.43 kg

DRUGS (5)
  1. CHANTIX [Suspect]
     Indication: SMOKING CESSATION THERAPY
     Dosage: 0.5 MG, UNK
     Dates: start: 20070226
  2. PROPRANOLOL [Concomitant]
  3. AMITRIPTYLINE HYDROCHLORIDE [Concomitant]
  4. TYLENOL [Concomitant]
  5. VITAMINS [Concomitant]

REACTIONS (2)
  - ABNORMAL DREAMS [None]
  - SOMNOLENCE [None]
